FAERS Safety Report 6409045-3 (Version None)
Quarter: 2009Q4

REPORT INFORMATION
  Report Type: 
  Country: None (occurrence: None)
  Receive Date: 20091019
  Receipt Date: 20091019
  Transmission Date: 20100525
  Serious: Yes (Other)
  Sender: FDA-Public Use
  Company Number: None

PATIENT
  Sex: Female
  Weight: 77.1115 kg

DRUGS (3)
  1. TAXOTERE [Suspect]
     Dosage: 135MG IV Q3W
     Route: 042
     Dates: start: 20090925
  2. TAXOTERE [Suspect]
     Dosage: 135MG IV Q3W
     Route: 042
     Dates: start: 20091016
  3. TAXOTERE [Suspect]

REACTIONS (2)
  - DYSPNOEA [None]
  - OXYGEN SATURATION DECREASED [None]
